FAERS Safety Report 8860015 (Version 1)
Quarter: 2012Q4

REPORT INFORMATION
  Report Type: 
  Country: US (occurrence: US)
  Receive Date: 20121025
  Receipt Date: 20121025
  Transmission Date: 20130627
  Serious: Yes (Hospitalization, Other)
  Sender: FDA-Public Use
  Company Number: US-BAYER-2012-110105

PATIENT
  Age: 35 Year
  Sex: Female

DRUGS (4)
  1. YASMIN [Suspect]
  2. ASPIRIN [Concomitant]
     Dosage: UNK
     Route: 048
     Dates: start: 20070706
  3. AVELOX [Concomitant]
     Dosage: 400 mg, UNK
     Route: 048
     Dates: start: 20080206
  4. ADVAIR [Concomitant]
     Dosage: 1 puff
     Route: 048
     Dates: start: 20080206

REACTIONS (3)
  - Deep vein thrombosis [None]
  - Pulmonary embolism [None]
  - Cholecystitis chronic [None]
